FAERS Safety Report 25224267 (Version 1)
Quarter: 2025Q2

REPORT INFORMATION
  Report Type: Spontaneous
  Country: US (occurrence: None)
  Receive Date: 20250421
  Receipt Date: 20250421
  Transmission Date: 20250717
  Serious: Yes (Death)
  Sender: FDA-CTU
  Company Number: None

PATIENT
  Age: 65 Year
  Sex: Female
  Weight: 96.9 kg

DRUGS (9)
  1. IBRANCE [Suspect]
     Active Substance: PALBOCICLIB
     Indication: Metastases to bone
     Dosage: 125 MG DILY ORAL
     Route: 048
     Dates: start: 20250417, end: 20250419
  2. FERROUS SULFATE [Concomitant]
     Active Substance: FERROUS SULFATE
  3. ALBUTEROL [Concomitant]
     Active Substance: ALBUTEROL
  4. ANASTROZOLE [Concomitant]
     Active Substance: ANASTROZOLE
  5. DEXAMETHASONE [Concomitant]
     Active Substance: DEXAMETHASONE
  6. ELIQUIS [Concomitant]
     Active Substance: APIXABAN
  7. IBUPROFEN [Concomitant]
     Active Substance: IBUPROFEN
  8. VITAMIN B12 [Concomitant]
     Active Substance: CYANOCOBALAMIN
  9. FLAXSEED [Concomitant]
     Active Substance: FLAX SEED

REACTIONS (2)
  - Metastases to bone [None]
  - Malignant neoplasm progression [None]

NARRATIVE: CASE EVENT DATE: 20250419
